FAERS Safety Report 5977535-3 (Version None)
Quarter: 2008Q4

REPORT INFORMATION
  Report Type: 
  Country: None (occurrence: None)
  Receive Date: 20081201
  Receipt Date: 20081201
  Transmission Date: 20090506
  Serious: No
  Sender: FDA-Public Use
  Company Number: None

PATIENT
  Age: 44 Year
  Sex: Female
  Weight: 47.1741 kg

DRUGS (1)
  1. CEFDINIR [Suspect]
     Indication: PHARYNGITIS
     Dosage: TWICE DAILY 12 HOURS
     Dates: start: 20081125, end: 20081130

REACTIONS (3)
  - ACTIVITIES OF DAILY LIVING IMPAIRED [None]
  - DIARRHOEA [None]
  - GASTRIC DISORDER [None]
